FAERS Safety Report 20478915 (Version 1)
Quarter: 2022Q1

REPORT INFORMATION
  Report Type: Report from Study
  Country: IT (occurrence: IT)
  Receive Date: 20220216
  Receipt Date: 20220216
  Transmission Date: 20220423
  Serious: Yes (Other)
  Sender: FDA-Public Use
  Company Number: None

PATIENT
  Age: 37 Year
  Sex: Female

DRUGS (4)
  1. MYCOPHENOLIC ACID [Interacting]
     Active Substance: MYCOPHENOLIC ACID
     Indication: Systemic lupus erythematosus
  2. COLCHICINE [Interacting]
     Active Substance: COLCHICINE
     Indication: Systemic lupus erythematosus
  3. TOZINAMERAN [Interacting]
     Active Substance: TOZINAMERAN
     Indication: COVID-19 immunisation
     Dosage: 30MCG, 2 DOSES
     Route: 065
  4. PREDNISONE [Interacting]
     Active Substance: PREDNISONE
     Indication: Systemic lupus erythematosus

REACTIONS (3)
  - Drug interaction [Unknown]
  - Antibody test negative [Unknown]
  - Vaccination failure [Unknown]
